FAERS Safety Report 18441772 (Version 1)
Quarter: 2020Q4

REPORT INFORMATION
  Report Type: Report from Study
  Country: EG (occurrence: EG)
  Receive Date: 20201029
  Receipt Date: 20201029
  Transmission Date: 20210114
  Serious: Yes (Death, Other)
  Sender: FDA-Public Use
  Company Number: EG-SEATTLE GENETICS-2020SGN04784

PATIENT
  Age: 24 Year
  Sex: Female

DRUGS (1)
  1. BRENTUXIMAB VEDOTIN-MPI [Suspect]
     Active Substance: BRENTUXIMAB VEDOTIN
     Indication: HODGKIN^S DISEASE
     Dosage: UNK, Q3WEEKS
     Route: 042
     Dates: start: 20200912

REACTIONS (1)
  - Death [Fatal]

NARRATIVE: CASE EVENT DATE: 20201013
